FAERS Safety Report 19381748 (Version 1)
Quarter: 2021Q2

REPORT INFORMATION
  Report Type: Spontaneous
  Country: FR (occurrence: FR)
  Receive Date: 20210607
  Receipt Date: 20210607
  Transmission Date: 20210717
  Serious: Yes (Hospitalization, Other)
  Sender: FDA-Public Use
  Company Number: FR-AUROBINDO-AUR-APL-2021-022465

PATIENT
  Age: 6 Year
  Sex: Male

DRUGS (2)
  1. VALPROIC ACID. [Suspect]
     Active Substance: VALPROIC ACID
     Indication: ENCEPHALOPATHY
     Dosage: UNK
     Route: 065
     Dates: start: 200907
  2. VALPROIC ACID. [Suspect]
     Active Substance: VALPROIC ACID
     Dosage: 150 MILLIGRAM, 3 TIMES A DAY
     Route: 065
     Dates: start: 20120827

REACTIONS (2)
  - Pancreatitis acute [Unknown]
  - Ascites [Unknown]
